FAERS Safety Report 5235131-X (Version None)
Quarter: 2007Q1

REPORT INFORMATION
  Report Type: 
  Country: None (occurrence: None)
  Receive Date: 20070207
  Receipt Date: 20070122
  Transmission Date: 20070707
  Serious: Yes (Hospitalization, Disabling)
  Sender: FDA-Public Use
  Company Number: 2007BL000203

PATIENT
  Age: 59 Year
  Sex: Female

DRUGS (10)
  1. PREDNISOLONE SODIUM PHOSPHATE [Suspect]
     Indication: PSORIATIC ARTHROPATHY
     Dosage: UNKNOWN; ORAL
     Route: 048
     Dates: start: 20000801
  2. ENBREL [Suspect]
     Indication: PSORIATIC ARTHROPATHY
     Dosage: 25 MILLIGRAMS;TWICE A WEEK;SUBCUTANEOUS
     Route: 058
     Dates: start: 20031201, end: 20060201
  3. ALENDRONIC ACID [Concomitant]
  4. AMITRIPTYLINE HCL [Concomitant]
  5. BENDROFLUMETHIAZIDE [Concomitant]
  6. ACETAMINOPHEN W/ CODEINE [Concomitant]
  7. LANSOPRAZOLE [Concomitant]
  8. PAROXETINE HCL [Concomitant]
  9. MST CONTINUS ^ASTA MEDICA^ [Concomitant]
  10. RAMIPRIL [Concomitant]

REACTIONS (3)
  - HIP ARTHROPLASTY [None]
  - STAPHYLOCOCCAL INFECTION [None]
  - WOUND INFECTION [None]
